FAERS Safety Report 13978044 (Version 1)
Quarter: 2017Q3

REPORT INFORMATION
  Report Type: Spontaneous
  Country: US (occurrence: None)
  Receive Date: 20170915
  Receipt Date: 20170915
  Transmission Date: 20171128
  Serious: No
  Sender: FDA-Public Use
  Company Number: None

PATIENT
  Age: 45 Year
  Sex: Female
  Weight: 65.77 kg

DRUGS (2)
  1. BUPROPION XL 150MG + 300MG [Suspect]
     Active Substance: BUPROPION
     Route: 048
  2. BUPROPION SR 75MG + 100MG [Suspect]
     Active Substance: BUPROPION HYDROCHLORIDE
     Indication: ANXIETY
     Route: 048
     Dates: start: 2003

REACTIONS (4)
  - Anxiety [None]
  - Irritability [None]
  - Disturbance in attention [None]
  - Nervousness [None]
